FAERS Safety Report 5632368-2 (Version None)
Quarter: 2008Q1

REPORT INFORMATION
  Report Type: 
  Country: None (occurrence: None)
  Receive Date: 20080131
  Receipt Date: 20071204
  Transmission Date: 20080703
  Serious: No
  Sender: FDA-Public Use
  Company Number: 163-21880-07100323(0)

PATIENT
  Age: 73 Year
  Sex: Male

DRUGS (2)
  1. REVLIMID [Suspect]
     Indication: MULTIPLE MYELOMA
     Dosage: 15 MG, DAILY X 21 DAYS, ORAL : 25 MG, DAILY X 21 DAYS, ORAL
     Route: 048
     Dates: start: 20070313, end: 20070601
  2. REVLIMID [Suspect]
     Indication: MULTIPLE MYELOMA
     Dosage: 15 MG, DAILY X 21 DAYS, ORAL : 25 MG, DAILY X 21 DAYS, ORAL
     Route: 048
     Dates: start: 20070613

REACTIONS (2)
  - FATIGUE [None]
  - LYMPHADENOPATHY [None]
